FAERS Safety Report 7109278-7 (Version None)
Quarter: 2010Q4

REPORT INFORMATION
  Report Type: 
  Country: None (occurrence: None)
  Receive Date: 20101117
  Receipt Date: 20101014
  Transmission Date: 20110411
  Serious: Yes (Hospitalization)
  Sender: FDA-Public Use
  Company Number: DE-AMGEN-DEUCT2010000057

PATIENT

DRUGS (11)
  1. ENBREL [Suspect]
     Dates: start: 20081111, end: 20100801
  2. ENBREL [Suspect]
     Dosage: 50 MG, QWK
     Route: 058
     Dates: start: 20100801
  3. SIMVADURA [Concomitant]
  4. ISCOVER [Concomitant]
  5. CLOPIDOGREL [Concomitant]
  6. METHADONE HCL [Concomitant]
  7. MAGNESIUM VERLA DRAGEES [Concomitant]
  8. HCT [Concomitant]
  9. ISOZID [Concomitant]
  10. LEVOTHYROXINE SODIUM [Concomitant]
  11. ATACAND [Concomitant]

REACTIONS (1)
  - ILEUS [None]
